FAERS Safety Report 9713495 (Version 2)
Quarter: 2015Q1

REPORT INFORMATION
  Report Type: Spontaneous
  Country: FR (occurrence: FR)
  Receive Date: 20131126
  Receipt Date: 20150114
  Transmission Date: 20150721
  Serious: Yes (Hospitalization)
  Sender: FDA-Public Use
  Company Number: FR-ASTRAZENECA-2013SE85324

PATIENT
  Age: 23116 Day
  Sex: Male

DRUGS (8)
  1. OXYNORM [Concomitant]
     Active Substance: OXYCODONE HYDROCHLORIDE
  2. POTASSIUM [Concomitant]
     Active Substance: POTASSIUM
  3. INEXIUM [Suspect]
     Active Substance: ESOMEPRAZOLE
     Route: 048
     Dates: end: 20131005
  4. LEXOMIL ROCHE [Concomitant]
     Active Substance: BROMAZEPAM
  5. SOLUPRED [Concomitant]
     Active Substance: PREDNISOLONE
  6. DUROGESIC [Concomitant]
     Active Substance: FENTANYL
  7. TRANSIPEG [Concomitant]
     Active Substance: POLYETHYLENE GLYCOL 3350
  8. PLAVIX [Concomitant]
     Active Substance: CLOPIDOGREL BISULFATE

REACTIONS (3)
  - Cerebrovascular accident [Unknown]
  - Lung disorder [Unknown]
  - Hyponatraemia [Unknown]

NARRATIVE: CASE EVENT DATE: 20131004
